FAERS Safety Report 9791836 (Version 1)
Quarter: 2014Q1

REPORT INFORMATION
  Report Type: Spontaneous
  Country: ES (occurrence: ES)
  Receive Date: 20140102
  Receipt Date: 20140102
  Transmission Date: 20141002
  Serious: Yes (Hospitalization)
  Sender: FDA-Public Use
  Company Number: ES-TEVA-453543ISR

PATIENT
  Age: 74 Year
  Sex: Female

DRUGS (5)
  1. AMOXICILLIN, CLAVULANIC ACID [Suspect]
     Indication: THROMBOPHLEBITIS
     Route: 065
  2. VANCOMYCIN [Suspect]
     Indication: STAPHYLOCOCCAL INFECTION
     Route: 042
  3. CEFEPIME [Concomitant]
     Indication: STAPHYLOCOCCAL INFECTION
     Route: 042
  4. METHYLPREDNISOLONE [Concomitant]
     Dosage: 750 MILLIGRAM DAILY;
     Route: 065
  5. PREDNISONE [Concomitant]
     Dosage: 1 MG/KG OF WEIGHT
     Route: 042

REACTIONS (2)
  - Drug reaction with eosinophilia and systemic symptoms [Recovering/Resolving]
  - Tubulointerstitial nephritis [Recovering/Resolving]
